FAERS Safety Report 9119627 (Version 1)
Quarter: 2013Q1

REPORT INFORMATION
  Report Type: Spontaneous
  Country: FR (occurrence: FR)
  Receive Date: 20130226
  Receipt Date: 20130226
  Transmission Date: 20140127
  Serious: Yes (Hospitalization)
  Sender: FDA-Public Use
  Company Number: FR-PFIZER INC-2013065979

PATIENT
  Age: 90 Year
  Sex: Female

DRUGS (18)
  1. TAZOCILLINE [Suspect]
     Dosage: 4 G, 3X/DAY
     Dates: start: 20130103, end: 20130114
  2. VANCOMYCIN [Suspect]
     Dosage: 900 MG, 2X/DAY
     Dates: start: 20130103, end: 20130106
  3. VANCOMYCIN [Suspect]
     Dosage: 1 G, UNK
     Dates: start: 20130107, end: 20130107
  4. VANCOMYCIN [Suspect]
     Dosage: 900 MG, 2X/DAY
     Dates: start: 20130108, end: 20130114
  5. GLUCIDION [Suspect]
     Dosage: 1 L, 1X/DAY
     Dates: start: 20130103
  6. BISOPROLOL [Concomitant]
     Dosage: 2.5 MG DAILY
  7. CLOPIDOGREL [Concomitant]
     Dosage: 1 DF DAILY
  8. PERINDOPRIL [Concomitant]
     Dosage: 2 MG DAILY
  9. PERINDOPRIL [Concomitant]
     Dosage: 4 MG/DAY
  10. KARDEGIC [Concomitant]
     Dosage: 160 MG/DAY
  11. FORLAX [Concomitant]
     Dosage: 1 DAILY
  12. MIANSERIN [Concomitant]
     Dosage: 1 DF/DAY
  13. LOXEN [Concomitant]
     Dosage: 20 MG, AS NEEDED
  14. ORNITHINE [Concomitant]
     Dosage: 1 DF DAILY
  15. COUMADINE [Concomitant]
  16. IMOVANE [Concomitant]
     Dosage: 1 DAILY
  17. PARACETAMOL [Concomitant]
     Dosage: UNK
  18. NORMACOL [Concomitant]
     Dosage: UNK

REACTIONS (2)
  - Hyponatraemia [Unknown]
  - Sepsis [None]
